FAERS Safety Report 8209220-1 (Version None)
Quarter: 2012Q1

REPORT INFORMATION
  Report Type: 
  Country: None (occurrence: None)
  Receive Date: 20120314
  Receipt Date: 20120306
  Transmission Date: 20120608
  Serious: Yes (Hospitalization)
  Sender: FDA-Public Use
  Company Number: PHHY2012CN019709

PATIENT
  Age: 18 Year
  Sex: Female

DRUGS (5)
  1. METHIMAZOLE [Suspect]
     Indication: BASEDOW'S DISEASE
     Dosage: 20 MG, PER DAY
     Route: 048
     Dates: start: 20090101
  2. METHIMAZOLE [Suspect]
     Dosage: 10 MG, PER DAY
     Route: 048
     Dates: start: 20110221
  3. METHIMAZOLE [Suspect]
     Dosage: 10 MG, BID
     Route: 048
     Dates: start: 20110517
  4. PROPYLTHIOURACIL [Concomitant]
     Indication: BASEDOW'S DISEASE
  5. METHIMAZOLE [Suspect]
     Dosage: 10 MG, PER DAY
     Route: 048
     Dates: start: 20110302

REACTIONS (7)
  - NAUSEA [None]
  - ABDOMINAL PAIN UPPER [None]
  - PYREXIA [None]
  - DIARRHOEA [None]
  - VOMITING [None]
  - ABDOMINAL TENDERNESS [None]
  - PANCREATITIS ACUTE [None]
